FAERS Safety Report 9867040 (Version 2)
Quarter: 2014Q1

REPORT INFORMATION
  Report Type: Spontaneous
  Country: ES (occurrence: ES)
  Receive Date: 20140204
  Receipt Date: 20140207
  Transmission Date: 20141002
  Serious: Yes (Death)
  Sender: FDA-Public Use
  Company Number: ES-009507513-1401ESP014029

PATIENT
  Age: 18 Year
  Sex: Female
  Weight: 68 kg

DRUGS (6)
  1. SINGULAIR 10 MG COMPRIMIDOS RECUBIERTOS CON PEL?CULA [Suspect]
     Indication: ASTHMA
     Dosage: 10 MG, QD
     Route: 048
     Dates: start: 2010
  2. XOLAIR [Suspect]
     Indication: ASTHMA
     Dosage: 150 MG, QM
     Route: 058
     Dates: start: 201209, end: 20131220
  3. SERETIDE ACCUHALER [Suspect]
     Indication: ASTHMA
     Dosage: 1 DF, QD
     Route: 055
     Dates: start: 2010
  4. TERBASMIN [Suspect]
     Indication: ASTHMA
     Dosage: 500 MICROGRAM, QD
     Route: 055
     Dates: start: 2009
  5. FLIXOTIDE [Suspect]
     Indication: ASTHMA
     Dosage: 500 MICROGRAM, QD
     Route: 055
     Dates: start: 2011
  6. DACORTIN [Suspect]
     Indication: ASTHMA
     Dosage: 10-30/DIA
     Route: 048

REACTIONS (1)
  - Sudden death [Fatal]
